FAERS Safety Report 24437084 (Version 2)
Quarter: 2024Q4

REPORT INFORMATION
  Report Type: Spontaneous
  Country: SE (occurrence: SE)
  Receive Date: 20241015
  Receipt Date: 20241118
  Transmission Date: 20250115
  Serious: Yes (Death)
  Sender: PFIZER
  Company Number: SE-PFIZER INC-202400275079

PATIENT
  Sex: Male
  Weight: 19 kg

DRUGS (1)
  1. LORLATINIB [Suspect]
     Active Substance: LORLATINIB
     Indication: Gastric cancer
     Dosage: 90 MG, 1X/DAY
     Route: 048
     Dates: start: 20230201, end: 20240601

REACTIONS (1)
  - Neoplasm progression [Fatal]
